FAERS Safety Report 5911011-9 (Version None)
Quarter: 2008Q4

REPORT INFORMATION
  Report Type: 
  Country: None (occurrence: None)
  Receive Date: 20081007
  Receipt Date: 20081001
  Transmission Date: 20090506
  Serious: Yes (Death, Hospitalization)
  Sender: FDA-Public Use
  Company Number: FR-JNJFOC-20081000194

PATIENT
  Sex: Male

DRUGS (7)
  1. RISPERDAL [Suspect]
     Route: 048
  2. RISPERDAL [Suspect]
     Indication: DRUG USE FOR UNKNOWN INDICATION
     Route: 048
  3. ZYPREXA [Suspect]
     Indication: DRUG USE FOR UNKNOWN INDICATION
     Route: 048
  4. RIVOTRIL [Concomitant]
     Route: 065
  5. LARGACTIL [Concomitant]
     Route: 065
  6. DIFFU K [Concomitant]
     Route: 065
  7. JOSIR [Concomitant]
     Route: 065

REACTIONS (2)
  - CHOLESTASIS [None]
  - DEATH [None]
